FAERS Safety Report 5781661-1 (Version None)
Quarter: 2008Q2

REPORT INFORMATION
  Report Type: 
  Country: None (occurrence: None)
  Receive Date: 20080619
  Receipt Date: 20080616
  Transmission Date: 20081010
  Serious: Yes (Hospitalization)
  Sender: FDA-Public Use
  Company Number: FABR-1000187

PATIENT
  Age: 61 Year
  Sex: Male
  Weight: 59.8 kg

DRUGS (4)
  1. FABRAZYME [Suspect]
     Indication: FABRY'S DISEASE
     Dosage: 60 MG, Q2W, INTRAVENOUS
     Route: 042
     Dates: start: 20050218
  2. FABRAZYME [Suspect]
  3. BENADRYL [Concomitant]
  4. ACETAMINOPHEN [Concomitant]

REACTIONS (1)
  - PNEUMONIA [None]
